FAERS Safety Report 18468250 (Version 2)
Quarter: 2021Q1

REPORT INFORMATION
  Report Type: Spontaneous
  Country: US (occurrence: US)
  Receive Date: 20201105
  Receipt Date: 20210107
  Transmission Date: 20210419
  Serious: No
  Sender: FDA-Public Use
  Company Number: US-009507513-2010USA010473

PATIENT
  Age: 32 Year
  Sex: Female
  Weight: 98 kg

DRUGS (2)
  1. NEXPLANON [Suspect]
     Active Substance: ETONOGESTREL
     Indication: CONTRACEPTION
     Dosage: 1 IMPLANT ROD, RIGHT ARM
     Route: 059
     Dates: start: 20190421, end: 20201026
  2. NEXPLANON [Suspect]
     Active Substance: ETONOGESTREL
     Indication: CONTRACEPTION
     Dosage: 1 IMPLANT ROD, RIGHT ARM
     Route: 059
     Dates: start: 20201026

REACTIONS (2)
  - Device breakage [Recovered/Resolved]
  - Loop electrosurgical excision procedure [Recovered/Resolved]

NARRATIVE: CASE EVENT DATE: 202007
